FAERS Safety Report 25044486 (Version 1)
Quarter: 2025Q1

REPORT INFORMATION
  Report Type: Report from Study
  Country: US (occurrence: US)
  Receive Date: 20250306
  Receipt Date: 20250306
  Transmission Date: 20250409
  Serious: Yes (Hospitalization)
  Sender: ALEXION PHARMACEUTICALS
  Company Number: US-AstraZeneca-CH-00819352A

PATIENT

DRUGS (1)
  1. ACALABRUTINIB [Suspect]
     Active Substance: ACALABRUTINIB
     Indication: Chronic lymphocytic leukaemia
     Dosage: 100 MILLIGRAM, BID

REACTIONS (6)
  - Back pain [Unknown]
  - Chest pain [Unknown]
  - Fatigue [Unknown]
  - Abdominal pain upper [Unknown]
  - Sinus disorder [Unknown]
  - Oxygen saturation decreased [Unknown]
